FAERS Safety Report 6181464-2 (Version None)
Quarter: 2009Q2

REPORT INFORMATION
  Report Type: 
  Country: None (occurrence: None)
  Receive Date: 20090505
  Receipt Date: 20090505
  Transmission Date: 20091009
  Serious: Yes (Death)
  Sender: FDA-Public Use
  Company Number: None

PATIENT
  Sex: Male

DRUGS (11)
  1. REVLIMID [Suspect]
     Indication: MULTIPLE MYELOMA
     Dosage: 5MG DAILY ORAL
     Route: 048
     Dates: start: 20081121, end: 20090108
  2. FENTANYL [Concomitant]
  3. DEXAMETHASONE 4MG TAB [Concomitant]
  4. RENAGEL [Concomitant]
  5. THALOMID [Concomitant]
  6. MEGESTROL ACETATE [Concomitant]
  7. VICODIN [Concomitant]
  8. OMEPRAZOLE [Concomitant]
  9. SEPTRA [Concomitant]
  10. TEMAZEPAM [Concomitant]
  11. VITAMIN B COMPLEX CAP [Concomitant]

REACTIONS (2)
  - ANAEMIA [None]
  - THROMBOCYTOPENIA [None]
